FAERS Safety Report 21234331 (Version 1)
Quarter: 2022Q3

REPORT INFORMATION
  Report Type: Other
  Country: None (occurrence: BR)
  Receive Date: 20220819
  Receipt Date: 20220819
  Transmission Date: 20221027
  Serious: Yes (Hospitalization, Other)
  Sender: FDA-Public Use
  Company Number: BR-B.Braun Medical Inc.-2132077

PATIENT
  Age: 36 Year
  Sex: Female

DRUGS (1)
  1. BUPIVACAINE HYDROCHLORIDE WITH DEXTROSE [Suspect]
     Active Substance: BUPIVACAINE HYDROCHLORIDE

REACTIONS (2)
  - Exposure during pregnancy [Recovered/Resolved]
  - Haemorrhage intracranial [Recovered/Resolved]
